FAERS Safety Report 22172777 (Version 13)
Quarter: 2023Q4

REPORT INFORMATION
  Report Type: Spontaneous
  Country: US (occurrence: US)
  Receive Date: 20230404
  Receipt Date: 20231113
  Transmission Date: 20240110
  Serious: Yes (Other)
  Sender: FDA-Public Use
  Company Number: US-PFIZER INC-PV202300061075

PATIENT
  Age: 75 Year
  Sex: Female

DRUGS (1)
  1. EUCRISA [Suspect]
     Active Substance: CRISABOROLE
     Dosage: 100 G, APPLY TO AFFECTED AREAS ONCE DAILY AS DIRECTED
     Route: 061

REACTIONS (17)
  - Hypertension [Unknown]
  - Off label use [Unknown]
  - Therapeutic response unexpected [Unknown]
  - Malaise [Not Recovered/Not Resolved]
  - Rash [Unknown]
  - Dry skin [Unknown]
  - Hypersensitivity [Unknown]
  - Pyrexia [Unknown]
  - Erythema [Unknown]
  - Tooth fracture [Unknown]
  - Pain [Unknown]
  - Rash [Recovering/Resolving]
  - Asthma [Unknown]
  - Infection [Unknown]
  - Condition aggravated [Not Recovered/Not Resolved]
  - Illness [Unknown]
  - Skin sensitisation [Unknown]
